FAERS Safety Report 5347640-3 (Version None)
Quarter: 2007Q2

REPORT INFORMATION
  Report Type: 
  Country: None (occurrence: None)
  Receive Date: 20070606
  Receipt Date: 20070604
  Transmission Date: 20071010
  Serious: Yes (Hospitalization)
  Sender: FDA-Public Use
  Company Number: JP-BRISTOL-MYERS SQUIBB COMPANY-13784806

PATIENT
  Age: 69 Year
  Sex: Male
  Weight: 45 kg

DRUGS (25)
  1. PACLITAXEL [Suspect]
     Indication: OESOPHAGEAL CARCINOMA
     Route: 042
     Dates: start: 20070510, end: 20070510
  2. DIPHENHYDRAMINE HCL [Concomitant]
     Route: 048
     Dates: start: 20070501, end: 20070501
  3. DIPHENHYDRAMINE HCL [Concomitant]
     Route: 048
     Dates: start: 20070510, end: 20070510
  4. RANITIDINE [Concomitant]
     Route: 042
     Dates: start: 20070501, end: 20070501
  5. RANITIDINE [Concomitant]
     Route: 042
     Dates: start: 20070510, end: 20070510
  6. DEXAMETHASONE TAB [Concomitant]
     Route: 042
     Dates: start: 20070501, end: 20070501
  7. DEXAMETHASONE TAB [Concomitant]
     Route: 042
     Dates: start: 20070510, end: 20070510
  8. THYRADIN S [Concomitant]
     Indication: HYPOTHYROIDISM
     Route: 048
  9. GASLON N [Concomitant]
     Indication: GASTRITIS
     Route: 048
     Dates: end: 20070410
  10. GASLON N [Concomitant]
     Route: 048
     Dates: start: 20070421
  11. PARIET [Concomitant]
     Indication: UPPER GASTROINTESTINAL HAEMORRHAGE
     Route: 048
     Dates: start: 20070421
  12. MAGMITT [Concomitant]
     Indication: CONSTIPATION
     Route: 048
     Dates: start: 20070423
  13. CALONAL [Concomitant]
     Indication: PYREXIA
     Route: 048
     Dates: start: 20070503
  14. FOIPAN [Concomitant]
     Indication: REFLUX OESOPHAGITIS
     Route: 048
     Dates: start: 20070508
  15. FLOMAX [Concomitant]
     Indication: INFECTION
     Route: 048
     Dates: start: 20070508, end: 20070516
  16. MUCOSOLVAN [Concomitant]
     Indication: PRODUCTIVE COUGH
     Route: 048
     Dates: start: 20070517
  17. OMEPRAL [Concomitant]
     Indication: UPPER GASTROINTESTINAL HAEMORRHAGE
     Route: 042
     Dates: start: 20070411, end: 20070420
  18. ADONA [Concomitant]
     Indication: UPPER GASTROINTESTINAL HAEMORRHAGE
     Route: 042
     Dates: start: 20070411, end: 20070420
  19. ROCEPHIN [Concomitant]
     Indication: INFECTION
     Route: 042
     Dates: start: 20070426, end: 20070430
  20. ROCEPHIN [Concomitant]
     Route: 042
     Dates: start: 20070502, end: 20070503
  21. MAXIPIME [Concomitant]
     Indication: INFECTION
     Route: 042
     Dates: start: 20070503, end: 20070508
  22. LACTEC [Concomitant]
     Indication: FLUID REPLACEMENT
     Route: 042
     Dates: start: 20070507, end: 20070507
  23. LACTEC [Concomitant]
     Indication: PARENTERAL NUTRITION
     Route: 042
     Dates: start: 20070507, end: 20070507
  24. SOLITA-T [Concomitant]
     Indication: FLUID REPLACEMENT
     Route: 042
     Dates: start: 20070517, end: 20070519
  25. SOLITA-T [Concomitant]
     Indication: PARENTERAL NUTRITION
     Route: 042
     Dates: start: 20070517, end: 20070519

REACTIONS (5)
  - ANOREXIA [None]
  - HAEMOGLOBIN DECREASED [None]
  - LEUKOPENIA [None]
  - NEUTROPENIA [None]
  - THROMBOCYTOPENIA [None]
